FAERS Safety Report 4397015-9 (Version None)
Quarter: 2004Q3

REPORT INFORMATION
  Report Type: 
  Country: None (occurrence: None)
  Receive Date: 20040708
  Receipt Date: 20040625
  Transmission Date: 20050211
  Serious: Yes (Other)
  Sender: FDA-Public Use
  Company Number: 2004220954BE

PATIENT
  Sex: Female

DRUGS (1)
  1. SOLU-MEDROL [Suspect]

REACTIONS (1)
  - CARDIAC ARREST [None]
